FAERS Safety Report 5486748-9 (Version None)
Quarter: 2007Q4

REPORT INFORMATION
  Report Type: 
  Country: None (occurrence: None)
  Receive Date: 20071016
  Receipt Date: 20071010
  Transmission Date: 20080405
  Serious: Yes (Congenital Anomaly)
  Sender: FDA-Public Use
  Company Number: A0679293A

PATIENT
  Sex: Male

DRUGS (6)
  1. LAMICTAL [Suspect]
     Indication: EPILEPSY
     Dosage: 300MG PER DAY
     Route: 048
     Dates: start: 20070517
  2. LAMICTAL [Suspect]
     Dosage: 125MG PER DAY
     Route: 048
     Dates: start: 20070410
  3. TOPAMAX [Concomitant]
     Dosage: 200MG PER DAY
  4. DEPAKOTE [Concomitant]
     Dosage: 2000MG PER DAY
  5. FOLIC ACID [Concomitant]
  6. TOBACCO [Concomitant]

REACTIONS (4)
  - SOLITARY KIDNEY [None]
  - SPINAL DISORDER [None]
  - SPINAL FUSION SURGERY [None]
  - URETERAL DISORDER [None]
